FAERS Safety Report 15066705 (Version 1)
Quarter: 2018Q2

REPORT INFORMATION
  Report Type: Spontaneous
  Country: US (occurrence: US)
  Receive Date: 20180626
  Receipt Date: 20180626
  Transmission Date: 20180711
  Serious: No
  Sender: FDA-Public Use
  Company Number: US-MYLANLABS-2018M1041286

PATIENT
  Age: 42 Year
  Sex: Male

DRUGS (1)
  1. LUXIQ [Suspect]
     Active Substance: BETAMETHASONE VALERATE
     Indication: DERMATITIS CONTACT
     Route: 003
     Dates: start: 20180605, end: 20180606

REACTIONS (2)
  - Application site pain [Recovering/Resolving]
  - Drug ineffective for unapproved indication [Recovering/Resolving]

NARRATIVE: CASE EVENT DATE: 20180605
